FAERS Safety Report 21781890 (Version 1)
Quarter: 2022Q4

REPORT INFORMATION
  Report Type: Report from Study
  Country: US (occurrence: US)
  Receive Date: 20221227
  Receipt Date: 20221227
  Transmission Date: 20230113
  Serious: No
  Sender: FDA-Public Use
  Company Number: US-ABBVIE-4209844

PATIENT
  Age: 29 Year
  Sex: Female

DRUGS (1)
  1. HUMIRA [Suspect]
     Active Substance: ADALIMUMAB
     Indication: Hidradenitis
     Dosage: CITRATE FREE
     Route: 058

REACTIONS (5)
  - Impatience [Unknown]
  - Injection site bruising [Recovering/Resolving]
  - Irritability [Not Recovered/Not Resolved]
  - Emotional disorder [Unknown]
  - Crying [Unknown]

NARRATIVE: CASE EVENT DATE: 20221031
